FAERS Safety Report 26178538 (Version 1)
Quarter: 2025Q4

REPORT INFORMATION
  Report Type: Spontaneous
  Country: US (occurrence: US)
  Receive Date: 20251219
  Receipt Date: 20251219
  Transmission Date: 20260117
  Serious: No
  Sender: SANOFI AVENTIS
  Company Number: US-SA-2025SA375120

PATIENT
  Age: 16 Year
  Sex: Male
  Weight: 58.28 kg

DRUGS (1)
  1. DUPIXENT [Suspect]
     Active Substance: DUPILUMAB
     Indication: Dermatitis atopic
     Dosage: 300 MG, QOW
     Route: 058

REACTIONS (11)
  - Pyrexia [Unknown]
  - Condition aggravated [Unknown]
  - Nausea [Unknown]
  - Condition aggravated [Unknown]
  - Fatigue [Unknown]
  - Nasal congestion [Unknown]
  - Cough [Unknown]
  - Essential tremor [Unknown]
  - Condition aggravated [Unknown]
  - Headache [Unknown]
  - Sinusitis [Unknown]

NARRATIVE: CASE EVENT DATE: 20251101
